FAERS Safety Report 6992932-5 (Version None)
Quarter: 2010Q3

REPORT INFORMATION
  Report Type: 
  Country: None (occurrence: None)
  Receive Date: 20100916
  Receipt Date: 20100916
  Transmission Date: 20110219
  Serious: Yes (Hospitalization)
  Sender: FDA-Public Use
  Company Number: None

PATIENT
  Age: 90 Year
  Sex: Male
  Weight: 81 kg

DRUGS (5)
  1. SULFAMETHOXAZOLE AND TRIMETHOPRIM [Suspect]
     Indication: CELLULITIS
     Dosage: UNKNOWN UNKNOWN PO
     Route: 048
  2. TOPROL-XL [Concomitant]
  3. PLAVIX [Concomitant]
  4. NIFEREX [Concomitant]
  5. CADUET [Concomitant]

REACTIONS (5)
  - APLASTIC ANAEMIA [None]
  - CARDIAC FAILURE CONGESTIVE [None]
  - PANCYTOPENIA [None]
  - RASH [None]
  - RENAL FAILURE [None]
